FAERS Safety Report 4932528-X (Version None)
Quarter: 2006Q1

REPORT INFORMATION
  Report Type: 
  Country: None (occurrence: None)
  Receive Date: 20060301
  Receipt Date: 20060216
  Transmission Date: 20060701
  Serious: Yes (Hospitalization)
  Sender: FDA-Public Use
  Company Number: 2005070053

PATIENT
  Age: 37 Year
  Sex: Female
  Weight: 45.5 kg

DRUGS (6)
  1. SUTENT [Suspect]
     Indication: GASTROINTESTINAL STROMAL TUMOUR
     Dosage: 37.5 MG (12.5 MG, 3 TIMES DAILY), ORAL
     Route: 048
     Dates: start: 20050318
  2. LOSEC (OMEPRAZOLE) [Concomitant]
  3. RAMIPRIL [Concomitant]
  4. CELEBREX [Concomitant]
  5. TENORMIN [Concomitant]
  6. BIO THREE (BACTERIA NOS) [Concomitant]

REACTIONS (2)
  - ILEUS [None]
  - THROMBOCYTOPENIA [None]
